FAERS Safety Report 20278680 (Version 1)
Quarter: 2022Q1

REPORT INFORMATION
  Report Type: Spontaneous
  Country: US (occurrence: US)
  Receive Date: 20220103
  Receipt Date: 20220103
  Transmission Date: 20220423
  Serious: Yes (Death, Other)
  Sender: FDA-Public Use
  Company Number: US-BIOVITRUM-2021US12996

PATIENT
  Sex: Female

DRUGS (6)
  1. SYNAGIS [Suspect]
     Active Substance: PALIVIZUMAB
     Indication: Low birth weight baby
     Route: 030
     Dates: start: 202012
  2. SYNAGIS [Suspect]
     Active Substance: PALIVIZUMAB
     Indication: Ventricular septal defect
  3. CAPTOPRIL [Concomitant]
     Active Substance: CAPTOPRIL
  4. SYNAGIS [Suspect]
     Active Substance: PALIVIZUMAB
     Indication: Congenital aortic anomaly
  5. SYNAGIS [Suspect]
     Active Substance: PALIVIZUMAB
     Indication: Pulmonary valve stenosis congenital
  6. SYNAGIS [Suspect]
     Active Substance: PALIVIZUMAB
     Indication: Congenital pulmonary valve atresia

REACTIONS (1)
  - Cardiac arrest [Fatal]
